FAERS Safety Report 8146911-5 (Version None)
Quarter: 2012Q1

REPORT INFORMATION
  Report Type: 
  Country: None (occurrence: None)
  Receive Date: 20120217
  Receipt Date: 20120210
  Transmission Date: 20120608
  Serious: Yes (Hospitalization)
  Sender: FDA-Public Use
  Company Number: GB-B.I. PHARMACEUTICALS,INC./RIDGEFIELD-2012-EU-00873GD

PATIENT
  Age: 71 Year
  Sex: Male

DRUGS (2)
  1. DIPYRIDAMOLE [Suspect]
     Indication: RETINAL VEIN THROMBOSIS
  2. ASPIRIN [Suspect]
     Indication: RETINAL VEIN THROMBOSIS

REACTIONS (2)
  - RETROPERITONEAL HAEMATOMA [None]
  - ARTERIAL HAEMORRHAGE [None]
